FAERS Safety Report 11361894 (Version 5)
Quarter: 2015Q4

REPORT INFORMATION
  Report Type: Spontaneous
  Country: JP (occurrence: JP)
  Receive Date: 20150810
  Receipt Date: 20151225
  Transmission Date: 20160304
  Serious: No
  Sender: FDA-Public Use
  Company Number: JP-009507513-1508JPN000491

PATIENT
  Age: 80 Year
  Sex: Female
  Weight: 68 kg

DRUGS (5)
  1. BLOPRESS [Suspect]
     Active Substance: CANDESARTAN CILEXETIL
     Indication: HYPERTENSION
     Dosage: 4 MG, QD
     Route: 048
     Dates: start: 20120912, end: 20150721
  2. METGLUCO [Suspect]
     Active Substance: METFORMIN HYDROCHLORIDE
     Indication: DIABETES MELLITUS
     Dosage: 250 MG, BID
     Route: 048
     Dates: start: 20120912, end: 20150721
  3. AMLODIN (AMLODIPINE BESYLATE) [Suspect]
     Active Substance: AMLODIPINE BESYLATE
     Indication: HYPERTENSION
     Dosage: 2.5 MG, QD
     Route: 048
     Dates: start: 20120912, end: 20150721
  4. MOHRUS [Suspect]
     Active Substance: KETOPROFEN
     Dosage: 30 MG, QD
     Route: 061
     Dates: start: 20120912, end: 20150721
  5. JANUVIA [Suspect]
     Active Substance: SITAGLIPTIN PHOSPHATE
     Indication: DIABETES MELLITUS
     Dosage: 50 MG, QD
     Route: 048
     Dates: start: 20120912, end: 20150721

REACTIONS (2)
  - Pain in extremity [Recovered/Resolved]
  - Spinal compression fracture [Unknown]

NARRATIVE: CASE EVENT DATE: 20141028
